FAERS Safety Report 11887645 (Version 3)
Quarter: 2016Q1

REPORT INFORMATION
  Report Type: Report from Study
  Country: US (occurrence: US)
  Receive Date: 20160105
  Receipt Date: 20160127
  Transmission Date: 20160526
  Serious: No
  Sender: FDA-Public Use
  Company Number: US-AMGEN-USASP2015140082

PATIENT
  Age: 51 Year
  Sex: Female

DRUGS (1)
  1. ENBREL [Suspect]
     Active Substance: ETANERCEPT
     Indication: RHEUMATOID ARTHRITIS
     Dosage: 50 MG, WEEKLY
     Route: 058
     Dates: start: 20151223

REACTIONS (9)
  - Device issue [Recovered/Resolved]
  - Incorrect product storage [Recovered/Resolved]
  - Injection site pain [Unknown]
  - Injection site pruritus [Unknown]
  - Eye swelling [Unknown]
  - Injection site bruising [Unknown]
  - Ocular hyperaemia [Unknown]
  - Vision blurred [Unknown]
  - Injection site erythema [Unknown]

NARRATIVE: CASE EVENT DATE: 201512
